FAERS Safety Report 8769636 (Version 2)
Quarter: 2013Q1

REPORT INFORMATION
  Report Type: Report from Study
  Country: JP (occurrence: JP)
  Receive Date: 20120905
  Receipt Date: 20130102
  Transmission Date: 20140127
  Serious: Yes (Hospitalization, Other)
  Sender: FDA-Public Use
  Company Number: JP-009507513-2012SP018061

PATIENT
  Age: 63 Year
  Sex: Female
  Weight: 49 kg

DRUGS (13)
  1. PEGINTRON [Suspect]
     Indication: CHRONIC HEPATITIS C
     Dosage: 1.5 MICROGRAM PER KILOGRAM, QW
     Route: 058
     Dates: start: 20120203, end: 20120227
  2. PEGINTRON [Suspect]
     Dosage: 1.5 MICROGRAM PER KILOGRAM, QW
     Route: 058
     Dates: start: 20120302, end: 20120408
  3. PEGINTRON [Suspect]
     Dosage: 1.1 MICROGRAM PER KILOGRAM, QW
     Route: 058
     Dates: start: 20120409
  4. REBETOL [Suspect]
     Indication: CHRONIC HEPATITIS C
     Dosage: 200 MG,DAY OR ON ALTERNATE DAYS
     Route: 048
     Dates: start: 20120203, end: 20120227
  5. REBETOL [Suspect]
     Dosage: 200MG/EVERY OTHER DAY
     Route: 048
     Dates: start: 20120618
  6. TELAVIC [Suspect]
     Indication: CHRONIC HEPATITIS C
     Dosage: 1500 MG, QD
     Route: 048
     Dates: start: 20120203, end: 20120227
  7. ZETIA [Concomitant]
     Indication: HYPERLIPIDAEMIA
     Dosage: 10 MG, QD, FORMULATION: POR
     Route: 048
  8. HORMONES (UNSPECIFIED) [Concomitant]
     Indication: THYROID FUNCTION TEST ABNORMAL
     Dosage: THYROID AND PARA-THYROID HORMONE PREPARATIONS, FORMULATION : POR
     Route: 048
  9. LENDORMIN [Concomitant]
     Indication: INSOMNIA
     Dosage: 0.125 MG, QD
     Route: 048
     Dates: start: 20120208, end: 20120227
  10. LOXONIN [Concomitant]
     Indication: INSOMNIA
     Dosage: 60 MG, QD
     Route: 048
     Dates: start: 20120208, end: 20120227
  11. RESTAMIN [Concomitant]
     Indication: PRODUCT USED FOR UNKNOWN INDICATION
     Dosage: CREAM 1%
     Route: 065
     Dates: start: 20120208, end: 20120211
  12. TALION (BEPOTASTINE BESYLATE) [Concomitant]
     Indication: RASH
     Dosage: UNK UNK, UNKNOWN
     Route: 065
     Dates: start: 20120210
  13. PATANOL [Concomitant]
     Indication: EYE PRURITUS
     Dates: start: 20120216

REACTIONS (4)
  - Face oedema [Recovering/Resolving]
  - Renal impairment [Recovered/Resolved with Sequelae]
  - Anaemia [Not Recovered/Not Resolved]
  - Thrombocytopenia [Not Recovered/Not Resolved]
